FAERS Safety Report 4675283-3 (Version None)
Quarter: 2005Q2

REPORT INFORMATION
  Report Type: 
  Country: None (occurrence: None)
  Receive Date: 20050527
  Receipt Date: 20050421
  Transmission Date: 20051028
  Serious: Yes (Other)
  Sender: FDA-Public Use
  Company Number: APCDSS2003000680

PATIENT
  Age: 25 Year
  Sex: Female

DRUGS (13)
  1. REMICADE [Suspect]
     Route: 041
  2. REMICADE [Suspect]
     Route: 041
  3. REMICADE [Suspect]
     Route: 041
  4. REMICADE [Suspect]
     Indication: VIRAL HEPATITIS CARRIER
     Route: 041
  5. REMICADE [Suspect]
     Indication: CROHN'S DISEASE
     Route: 041
  6. LAC B [Concomitant]
     Route: 065
  7. FAMOTIDINE [Concomitant]
     Route: 065
  8. MESALAMINE [Concomitant]
     Route: 065
  9. BETAMETHASONE [Concomitant]
     Route: 065
  10. PREDNISOLONE [Concomitant]
     Route: 065
  11. ETHYL ICOSAPENTATE [Concomitant]
     Route: 065
  12. DRIED HUMAN ANTIHEMOPHILIC FACTOR 13 [Concomitant]
     Route: 065
  13. LEBENIN S [Concomitant]
     Route: 065

REACTIONS (6)
  - EXANTHEM [None]
  - HEPATIC FUNCTION ABNORMAL [None]
  - JAUNDICE [None]
  - LIVER DISORDER [None]
  - LYMPHOCYTE MORPHOLOGY ABNORMAL [None]
  - WHITE BLOOD CELL COUNT DECREASED [None]
